FAERS Safety Report 7422807-9 (Version None)
Quarter: 2011Q2

REPORT INFORMATION
  Report Type: 
  Country: None (occurrence: None)
  Receive Date: 20110419
  Receipt Date: 20080325
  Transmission Date: 20111010
  Serious: Yes (Death, Hospitalization, Other)
  Sender: FDA-Public Use
  Company Number: US-BAYER-200817952NA

PATIENT
  Age: 68 Year
  Sex: Male
  Weight: 101 kg

DRUGS (24)
  1. INSULIN [Concomitant]
     Dosage: DRIP
     Route: 042
     Dates: start: 20060517
  2. PLAVIX [Concomitant]
     Dosage: 75MG
     Route: 048
     Dates: start: 20050101
  3. LASIX [Concomitant]
     Dosage: UNK
     Dates: start: 20060610
  4. HEPARIN [Concomitant]
     Dosage: 40000UNITS
     Route: 042
     Dates: start: 20060517
  5. LISINOPRIL [Concomitant]
     Indication: HYPERTENSION
     Dosage: UNK
     Dates: start: 20040101, end: 20060101
  6. ZOCOR [Concomitant]
     Dosage: 10MG LONG TERM MEDICATION
     Route: 048
  7. ACETYLSALICYLIC ACID SRT [Concomitant]
  8. ALBUMIN (HUMAN) [Concomitant]
     Dosage: 250ML
     Route: 042
     Dates: start: 20060517
  9. NITROGLYCERIN [Concomitant]
     Dosage: PASTE
     Route: 061
     Dates: start: 20060511
  10. ZINACEF [Concomitant]
     Dosage: 1.5G
     Route: 042
     Dates: start: 20060517
  11. VANCOMYCIN [Concomitant]
     Dosage: 1.5 G
     Route: 042
     Dates: start: 20060517
  12. GLIPIZIDE [Concomitant]
     Dosage: 10MG
     Route: 048
  13. DOPAMINE HCL [Concomitant]
     Dosage: 3MCG/KG/MIN
     Route: 042
     Dates: start: 20060517
  14. AVELOX [Concomitant]
     Dosage: UNK
     Dates: start: 20060610
  15. VERSED [Concomitant]
     Dosage: 10MG
     Route: 042
  16. AMIODARONE [Concomitant]
     Indication: ATRIAL FIBRILLATION
  17. MAXIPIME [Concomitant]
     Route: 042
  18. TRASYLOL [Suspect]
     Indication: CORONARY ARTERY BYPASS
     Dosage: UNK
     Route: 042
     Dates: start: 20060517, end: 20060517
  19. ZEMURON [Concomitant]
  20. NITROGLYCERIN [Concomitant]
     Dosage: DRIP
     Route: 042
     Dates: start: 20060517
  21. BICARBONAT [Concomitant]
     Indication: RENAL FAILURE
     Dosage: UNK
     Route: 042
     Dates: start: 20060512
  22. MUCOMYST [Concomitant]
     Indication: RENAL FAILURE
     Dosage: UNK
     Dates: start: 20060512
  23. HEPARIN [Concomitant]
     Dosage: DRIP
     Route: 042
     Dates: start: 20060511
  24. INSULIN [Concomitant]
     Dosage: 15UNITS AT NIGHT, LONG TERM
     Route: 058

REACTIONS (12)
  - UNEVALUABLE EVENT [None]
  - ACTIVITIES OF DAILY LIVING IMPAIRED [None]
  - INJURY [None]
  - ANHEDONIA [None]
  - ANXIETY [None]
  - PAIN [None]
  - STRESS [None]
  - RENAL FAILURE ACUTE [None]
  - ILL-DEFINED DISORDER [None]
  - MULTI-ORGAN FAILURE [None]
  - EMOTIONAL DISTRESS [None]
  - RENAL FAILURE [None]
